FAERS Safety Report 9317328 (Version 1)
Quarter: 2013Q2

REPORT INFORMATION
  Report Type: Spontaneous
  Country: US (occurrence: None)
  Receive Date: 20130524
  Receipt Date: 20130524
  Transmission Date: 20140414
  Serious: Yes (Death, Disabling, Other)
  Sender: FDA-Public Use
  Company Number: 2013P1006407

PATIENT
  Age: 68 Year
  Sex: Female

DRUGS (6)
  1. RILUTEK [Suspect]
     Indication: AMYOTROPHIC LATERAL SCLEROSIS
     Dates: start: 20130201, end: 20130327
  2. CALCIUM [Suspect]
  3. VITAMIN D [Concomitant]
  4. ERGOCALCIFEROL [Concomitant]
  5. CITAOPRAM [Concomitant]
  6. FUROSEMIDE [Concomitant]

REACTIONS (3)
  - Drug ineffective [None]
  - General physical health deterioration [None]
  - Dysphagia [None]
